FAERS Safety Report 20947186 (Version 1)
Quarter: 2022Q2

REPORT INFORMATION
  Report Type: Spontaneous
  Country: PT (occurrence: PT)
  Receive Date: 20220610
  Receipt Date: 20220610
  Transmission Date: 20220721
  Serious: Yes (Other)
  Sender: FDA-Public Use
  Company Number: PT-VIIV HEALTHCARE LIMITED-PT2022EME083041

PATIENT
  Age: 49 Year
  Sex: Male

DRUGS (3)
  1. EMTRICITABINE\TENOFOVIR DISOPROXIL [Suspect]
     Active Substance: EMTRICITABINE\TENOFOVIR DISOPROXIL
     Indication: HIV infection
     Dosage: UNK
     Dates: start: 201809
  2. DOLUTEGRAVIR [Suspect]
     Active Substance: DOLUTEGRAVIR
     Indication: HIV infection
     Dosage: UNK
     Dates: start: 201809
  3. DOVATO [Suspect]
     Active Substance: DOLUTEGRAVIR SODIUM\LAMIVUDINE
     Indication: HIV infection
     Dosage: UNK
     Dates: start: 2020

REACTIONS (13)
  - Cytomegalovirus infection [Unknown]
  - Pathogen resistance [Unknown]
  - Bladder ulcer [Unknown]
  - Escherichia infection [Unknown]
  - Latent tuberculosis [Unknown]
  - CD4 lymphocytes decreased [Unknown]
  - Dysuria [Recovering/Resolving]
  - Osteopenia [Unknown]
  - Decreased appetite [Unknown]
  - Weight decreased [Unknown]
  - Haematuria [Recovering/Resolving]
  - Night sweats [Unknown]
  - Polyuria [Recovering/Resolving]

NARRATIVE: CASE EVENT DATE: 20200101
